FAERS Safety Report 4550154-1 (Version None)
Quarter: 2005Q1

REPORT INFORMATION
  Report Type: 
  Country: None (occurrence: None)
  Receive Date: 20050112
  Receipt Date: 20040630
  Transmission Date: 20050727
  Serious: Yes (Other)
  Sender: FDA-Public Use
  Company Number: JP-ROCHE-372808

PATIENT
  Age: 12 Year
  Sex: Male

DRUGS (4)
  1. TAMIFLU [Suspect]
     Indication: INFLUENZA
     Route: 048
     Dates: start: 20040130, end: 20040201
  2. ZITHROMAX [Concomitant]
     Route: 048
     Dates: start: 20040130, end: 20040131
  3. CALONAL [Concomitant]
     Route: 048
     Dates: start: 20040130, end: 20040131
  4. TELGIN G [Concomitant]
     Route: 048
     Dates: start: 20040130, end: 20040131

REACTIONS (6)
  - DELIRIUM [None]
  - DEPRESSED LEVEL OF CONSCIOUSNESS [None]
  - DYSKINESIA [None]
  - DYSPHONIA [None]
  - EYE DISORDER [None]
  - LOGORRHOEA [None]
